FAERS Safety Report 15268815 (Version 1)
Quarter: 2018Q3

REPORT INFORMATION
  Report Type: Report from Study
  Country: DE (occurrence: DE)
  Receive Date: 20180813
  Receipt Date: 20180813
  Transmission Date: 20181010
  Serious: Yes (Other)
  Sender: FDA-Public Use
  Company Number: DE-UCBSA-2018034154

PATIENT
  Sex: Male

DRUGS (19)
  1. KINERET [Concomitant]
     Active Substance: ANAKINRA
     Indication: PRODUCT USED FOR UNKNOWN INDICATION
     Dosage: 100MG
     Dates: start: 201504, end: 201512
  2. LEFLUNOMIDE. [Concomitant]
     Active Substance: LEFLUNOMIDE
     Indication: PRODUCT USED FOR UNKNOWN INDICATION
     Dosage: 20 MG
  3. METHOTREXATE. [Concomitant]
     Active Substance: METHOTREXATE
     Indication: PRODUCT USED FOR UNKNOWN INDICATION
     Dosage: 10 MG
  4. HUMIRA [Concomitant]
     Active Substance: ADALIMUMAB
     Indication: PRODUCT USED FOR UNKNOWN INDICATION
     Dosage: 40MG
     Dates: start: 200904, end: 200907
  5. ROACTEMRA [Concomitant]
     Active Substance: TOCILIZUMAB
     Dosage: 640MG
     Dates: start: 201201
  6. ROACTEMRA [Concomitant]
     Active Substance: TOCILIZUMAB
     Dosage: 677 MG
  7. MABTHERA [Concomitant]
     Active Substance: RITUXIMAB
     Indication: PRODUCT USED FOR UNKNOWN INDICATION
     Dosage: 1000 MG
     Dates: start: 200909, end: 201003
  8. ROACTEMRA [Concomitant]
     Active Substance: TOCILIZUMAB
     Indication: PRODUCT USED FOR UNKNOWN INDICATION
     Dosage: 660MG
     Dates: start: 201007
  9. SIMPONI [Concomitant]
     Active Substance: GOLIMUMAB
     Indication: PRODUCT USED FOR UNKNOWN INDICATION
     Dosage: 50MG
     Dates: start: 201403, end: 201407
  10. CERTOLIZUMAB PEGOL RA [Suspect]
     Active Substance: CERTOLIZUMAB PEGOL
     Indication: RHEUMATOID ARTHRITIS
     Dosage: 400 MG
     Dates: start: 201502, end: 201503
  11. MABTHERA [Concomitant]
     Active Substance: RITUXIMAB
     Dosage: 500 MG
     Dates: start: 201601
  12. ROACTEMRA [Concomitant]
     Active Substance: TOCILIZUMAB
     Dosage: 638MG
     Dates: end: 201108
  13. ROACTEMRA [Concomitant]
     Active Substance: TOCILIZUMAB
     Dosage: 680MG
     Dates: end: 201312
  14. ORENCIA [Concomitant]
     Active Substance: ABATACEPT
     Dosage: 125 MG
     Dates: start: 201401, end: 201402
  15. METHOTREXATE. [Concomitant]
     Active Substance: METHOTREXATE
     Dosage: UNK
  16. ORENCIA [Concomitant]
     Active Substance: ABATACEPT
     Indication: PRODUCT USED FOR UNKNOWN INDICATION
     Dosage: 750MG
     Dates: start: 201109, end: 201112
  17. METHOTREXATE. [Concomitant]
     Active Substance: METHOTREXATE
     Dosage: 15 MG
  18. ROACTEMRA [Concomitant]
     Active Substance: TOCILIZUMAB
     Dosage: 640MG
     Dates: start: 201607, end: 201704
  19. ENBREL [Concomitant]
     Active Substance: ETANERCEPT
     Indication: PRODUCT USED FOR UNKNOWN INDICATION
     Dosage: 50MG
     Dates: start: 201407, end: 201501

REACTIONS (1)
  - Plasma cell myeloma [Unknown]

NARRATIVE: CASE EVENT DATE: 20170522
